FAERS Safety Report 12057453 (Version 9)
Quarter: 2016Q3

REPORT INFORMATION
  Report Type: Report from Study
  Country: FR (occurrence: FR)
  Receive Date: 20160209
  Receipt Date: 20160817
  Transmission Date: 20161109
  Serious: Yes (Hospitalization, Other)
  Sender: FDA-Public Use
  Company Number: FR-EXELIXIS-XL18416005971

PATIENT
  Age: 61 Year
  Sex: Male
  Weight: 55 kg

DRUGS (11)
  1. TRIMEBUTINE [Concomitant]
     Active Substance: TRIMEBUTINE
  2. BLINDED XL184 [Suspect]
     Active Substance: CABOZANTINIB
     Dosage: UNK
     Route: 048
     Dates: start: 20160211, end: 20160318
  3. BLINDED XL184 [Suspect]
     Active Substance: CABOZANTINIB
     Dosage: UNK
     Dates: start: 20160415, end: 20160501
  4. BLINDED XL184 [Suspect]
     Active Substance: CABOZANTINIB
     Indication: MEDULLARY THYROID CANCER
     Dosage: UNK
     Route: 048
     Dates: start: 20151223, end: 20160121
  5. LEVOTHYROX [Concomitant]
     Active Substance: LEVOTHYROXINE
  6. BLINDED XL184 [Suspect]
     Active Substance: CABOZANTINIB
     Indication: MEDULLARY THYROID CANCER
     Dosage: UNK
     Route: 048
     Dates: start: 20151223, end: 20160121
  7. BLINDED XL184 [Suspect]
     Active Substance: CABOZANTINIB
     Dosage: UNK
     Route: 048
     Dates: start: 20160211, end: 20160318
  8. BLINDED XL184 [Suspect]
     Active Substance: CABOZANTINIB
     Dosage: UNK
     Dates: start: 20160415, end: 20160501
  9. PARACETAMOL [Concomitant]
     Active Substance: ACETAMINOPHEN
     Dosage: UNK
  10. TRAMADOL. [Concomitant]
     Active Substance: TRAMADOL
     Dosage: UNK
     Dates: start: 20150831
  11. PANTOPRAZOLE [Concomitant]
     Active Substance: PANTOPRAZOLE SODIUM

REACTIONS (3)
  - Tumour necrosis [Recovered/Resolved]
  - Tumour necrosis [Recovered/Resolved]
  - Tumour necrosis [Recovered/Resolved]

NARRATIVE: CASE EVENT DATE: 20160121
